FAERS Safety Report 7101311-1 (Version None)
Quarter: 2010Q4

REPORT INFORMATION
  Report Type: 
  Country: None (occurrence: None)
  Receive Date: 20101105
  Receipt Date: 20101021
  Transmission Date: 20110411
  Serious: Yes (Other)
  Sender: FDA-Public Use
  Company Number: 020797

PATIENT
  Sex: Female

DRUGS (1)
  1. CIMZIA [Suspect]
     Indication: OFF LABEL USE
     Dosage: (SUBCUTANEOUS)
     Route: 058
     Dates: start: 20100702, end: 20100101

REACTIONS (2)
  - COLECTOMY [None]
  - DRUG INEFFECTIVE [None]
